FAERS Safety Report 12877173 (Version 1)
Quarter: 2016Q4

REPORT INFORMATION
  Report Type: Spontaneous
  Country: US (occurrence: US)
  Receive Date: 20161024
  Receipt Date: 20161024
  Transmission Date: 20170207
  Serious: No
  Sender: FDA-Public Use
  Company Number: US-STALLERGENES SAS-1058679

PATIENT
  Sex: Female

DRUGS (2)
  1. ORALAIR [Suspect]
     Active Substance: ANTHOXANTHUM ODORATUM POLLEN\DACTYLIS GLOMERATA POLLEN\LOLIUM PERENNE POLLEN\PHLEUM PRATENSE POLLEN\POA PRATENSIS POLLEN
     Indication: RHINITIS ALLERGIC
     Route: 060
     Dates: start: 201603, end: 201604
  2. RHINOCORT [Suspect]
     Active Substance: BUDESONIDE
     Route: 065

REACTIONS (2)
  - Hyperchlorhydria [Recovered/Resolved]
  - Diarrhoea [Recovered/Resolved]

NARRATIVE: CASE EVENT DATE: 201603
